FAERS Safety Report 9450346 (Version 1)
Quarter: 2013Q3

REPORT INFORMATION
  Report Type: Spontaneous
  Country: US (occurrence: US)
  Receive Date: 20130809
  Receipt Date: 20130809
  Transmission Date: 20140515
  Serious: No
  Sender: FDA-Public Use
  Company Number: US-009507513-1308USA000979

PATIENT
  Age: 66 Year
  Sex: Female

DRUGS (1)
  1. DULERA [Suspect]
     Dosage: 2 PUFFS A DAY
     Route: 055
     Dates: start: 2012

REACTIONS (5)
  - Oral fungal infection [Unknown]
  - Heart rate increased [Unknown]
  - Dysphonia [Unknown]
  - Product packaging quantity issue [Unknown]
  - Product quality issue [Unknown]
